FAERS Safety Report 23079866 (Version 8)
Quarter: 2024Q3

REPORT INFORMATION
  Report Type: Report from Study
  Country: US (occurrence: US)
  Receive Date: 20231018
  Receipt Date: 20240708
  Transmission Date: 20241016
  Serious: Yes (Other)
  Sender: MYLAN
  Company Number: US-MYLANLABS-2023M1109213

PATIENT
  Sex: Male

DRUGS (11)
  1. GLATIRAMER ACETATE [Suspect]
     Active Substance: GLATIRAMER ACETATE
     Indication: Multiple sclerosis
     Dosage: 40 MILLIGRAM, 3XW (THREE TIMES A WEEK)
     Route: 058
  2. GLATIRAMER ACETATE [Suspect]
     Active Substance: GLATIRAMER ACETATE
     Dosage: 40 MILLIGRAM, 3XW (THREE TIMES A WEEK)
     Route: 065
     Dates: start: 202403
  3. TRAMADOL [Concomitant]
     Active Substance: TRAMADOL\TRAMADOL HYDROCHLORIDE
     Dosage: UNK
     Route: 065
  4. SUMATRIPTAN [Concomitant]
     Active Substance: SUMATRIPTAN
     Dosage: UNK
     Route: 065
  5. TIZANIDINE [Concomitant]
     Active Substance: TIZANIDINE
     Dosage: UNK
     Route: 065
  6. BACLOFEN [Concomitant]
     Active Substance: BACLOFEN
     Dosage: UNK
     Route: 065
  7. BUTALBITAL AND ACETAMINOPHEN [Concomitant]
     Active Substance: ACETAMINOPHEN\BUTALBITAL
     Dosage: UNK
     Route: 065
  8. IBUPROFEN [Concomitant]
     Active Substance: IBUPROFEN
     Dosage: UNK
     Route: 065
  9. NEXIUM [Concomitant]
     Active Substance: ESOMEPRAZOLE MAGNESIUM
     Indication: Dyspepsia
     Dosage: UNK
     Route: 065
  10. AMITRIPTYLINE [Concomitant]
     Active Substance: AMITRIPTYLINE
     Indication: Insomnia
     Dosage: UNK
     Route: 065
  11. AMITRIPTYLINE [Concomitant]
     Active Substance: AMITRIPTYLINE
     Dosage: 50 MILLIGRAM (UPGRADED TO 50MG)
     Route: 065

REACTIONS (20)
  - Seizure [Unknown]
  - Neoplasm malignant [Unknown]
  - Multiple sclerosis relapse [Unknown]
  - Neck injury [Unknown]
  - Neck mass [Unknown]
  - Fall [Unknown]
  - Gait inability [Unknown]
  - Melanocytic naevus [Unknown]
  - Neoplasm [Unknown]
  - Musculoskeletal stiffness [Unknown]
  - Skin wound [Unknown]
  - Headache [Unknown]
  - Insomnia [Unknown]
  - Vision blurred [Unknown]
  - Eye pain [Unknown]
  - Feeling cold [Unknown]
  - Tremor [Unknown]
  - Feeling abnormal [Unknown]
  - Pain [Unknown]
  - Product dose omission issue [Unknown]
